FAERS Safety Report 21959481 (Version 2)
Quarter: 2023Q1

REPORT INFORMATION
  Report Type: Report from Study
  Country: US (occurrence: US)
  Receive Date: 20230206
  Receipt Date: 20230217
  Transmission Date: 20230417
  Serious: Yes (Death, Other)
  Sender: FDA-Public Use
  Company Number: US-GW PHARMA-2023-US-002817

PATIENT
  Age: 35 Year
  Sex: Female

DRUGS (5)
  1. EPIDIOLEX [Suspect]
     Active Substance: CANNABIDIOL
     Indication: Lennox-Gastaut syndrome
     Dosage: 1.8 MILLILITER IN THE MORNING 2.4 MILLILITER AT BED TIME
     Route: 048
     Dates: start: 202211
  2. DEPAKOTE [Concomitant]
     Active Substance: DIVALPROEX SODIUM
     Indication: Product used for unknown indication
  3. TOPAMAX [Concomitant]
     Active Substance: TOPIRAMATE
     Indication: Product used for unknown indication
  4. LEVOTHYROXINE [Concomitant]
     Active Substance: LEVOTHYROXINE
     Indication: Product used for unknown indication
     Dosage: UNK
  5. BRIVIACT [Concomitant]
     Active Substance: BRIVARACETAM
     Indication: Product used for unknown indication

REACTIONS (1)
  - Pneumonia aspiration [Fatal]

NARRATIVE: CASE EVENT DATE: 20230122
